FAERS Safety Report 20046058 (Version 1)
Quarter: 2021Q4

REPORT INFORMATION
  Report Type: Spontaneous
  Country: US (occurrence: None)
  Receive Date: 20211108
  Receipt Date: 20211108
  Transmission Date: 20220304
  Serious: No
  Sender: FDA-Public Use
  Company Number: None

PATIENT

DRUGS (2)
  1. PEGFILGRASTIM [Suspect]
     Active Substance: PEGFILGRASTIM
  2. UDENYCA [Suspect]
     Active Substance: PEGFILGRASTIM-CBQV

REACTIONS (3)
  - Insurance issue [None]
  - Device difficult to use [None]
  - Intentional product use issue [None]
